FAERS Safety Report 23205280 (Version 1)
Quarter: 2023Q4

REPORT INFORMATION
  Report Type: Spontaneous
  Country: US (occurrence: US)
  Receive Date: 20231120
  Receipt Date: 20231120
  Transmission Date: 20240110
  Serious: No
  Sender: FDA-Public Use
  Company Number: US-PFIZER INC-202300370232

PATIENT
  Sex: Female

DRUGS (1)
  1. ZAVZPRET [Suspect]
     Active Substance: ZAVEGEPANT HYDROCHLORIDE
     Indication: Eye disorder
     Dosage: UNK

REACTIONS (3)
  - Dizziness [Recovered/Resolved]
  - Brain fog [Recovered/Resolved]
  - Dysgeusia [Recovered/Resolved]
